FAERS Safety Report 22542065 (Version 9)
Quarter: 2023Q4

REPORT INFORMATION
  Report Type: Report from Study
  Country: CA (occurrence: CA)
  Receive Date: 20230609
  Receipt Date: 20231109
  Transmission Date: 20240110
  Serious: Yes (Other)
  Sender: FDA-Public Use
  Company Number: CA-JNJFOC-20230565910

PATIENT
  Age: 41 Year
  Sex: Female

DRUGS (6)
  1. TREMFYA [Suspect]
     Active Substance: GUSELKUMAB
     Indication: Psoriatic arthropathy
     Route: 058
     Dates: start: 20220928
  2. TREMFYA [Suspect]
     Active Substance: GUSELKUMAB
     Route: 058
  3. TREMFYA [Suspect]
     Active Substance: GUSELKUMAB
     Route: 058
     Dates: start: 20220928
  4. TREMFYA [Suspect]
     Active Substance: GUSELKUMAB
     Route: 058
     Dates: start: 20220928
  5. LEFLUNOMIDE [Suspect]
     Active Substance: LEFLUNOMIDE
     Indication: Product used for unknown indication
     Route: 065
  6. COSENTYX [Suspect]
     Active Substance: SECUKINUMAB
     Indication: Product used for unknown indication
     Route: 065

REACTIONS (21)
  - Skin cancer [Unknown]
  - Haemorrhage [Unknown]
  - Joint destruction [Unknown]
  - Hip surgery [Unknown]
  - Psoriatic arthropathy [Not Recovered/Not Resolved]
  - Groin pain [Unknown]
  - Impaired healing [Unknown]
  - Frostbite [Not Recovered/Not Resolved]
  - Psoriasis [Unknown]
  - Pain [Unknown]
  - Vomiting [Not Recovered/Not Resolved]
  - Hypertension [Unknown]
  - Nail bed bleeding [Unknown]
  - Diarrhoea [Unknown]
  - Drug specific antibody [Unknown]
  - Staphylococcal infection [Unknown]
  - Weight decreased [Unknown]
  - Drug ineffective [Unknown]
  - Contusion [Not Recovered/Not Resolved]
  - Off label use [Unknown]
  - Blister [Unknown]
